FAERS Safety Report 7739911-8 (Version None)
Quarter: 2011Q3

REPORT INFORMATION
  Report Type: 
  Country: None (occurrence: None)
  Receive Date: 20110909
  Receipt Date: 20110906
  Transmission Date: 20111222
  Serious: Yes (Other)
  Sender: FDA-Public Use
  Company Number: PHHY2007CA01150

PATIENT
  Sex: Male

DRUGS (7)
  1. LIPITOR [Concomitant]
     Dosage: 10 MG, QD
  2. CLOZAPINE [Suspect]
     Indication: SCHIZOPHRENIA
     Dosage: 800 MG, QD
     Route: 048
     Dates: start: 19970320
  3. FLUOXETINE [Concomitant]
     Dosage: 60 MG, QD
     Route: 048
  4. CLOZAPINE [Suspect]
     Dosage: 700 MG, QD
     Route: 048
     Dates: start: 20071204
  5. FLUOXETINE [Concomitant]
     Dosage: 20 MG, UNK
     Dates: start: 20000101
  6. SOFLAX [Concomitant]
     Dosage: 200 MG, QHS
     Route: 048
  7. CLOZAPINE [Suspect]
     Dosage: 450 MG, 125 MG Q AM, 125 MG Q SUPPER, 200 MG QHS
     Route: 048
     Dates: start: 20000101

REACTIONS (2)
  - DISEASE PROGRESSION [None]
  - NON-HODGKIN'S LYMPHOMA [None]
